FAERS Safety Report 5896923-7 (Version None)
Quarter: 2008Q3

REPORT INFORMATION
  Report Type: 
  Country: None (occurrence: None)
  Receive Date: 20080923
  Receipt Date: 20080908
  Transmission Date: 20090109
  Serious: Yes (Death, Hospitalization)
  Sender: FDA-Public Use
  Company Number: KADN20080353

PATIENT
  Age: 53 Year
  Sex: Female

DRUGS (4)
  1. MORPHINE [Suspect]
     Dosage: ORAL
     Route: 048
     Dates: end: 20050101
  2. ACETAMINOPHEN AND HYDROCODONE BITARTRATE [Suspect]
     Dosage: ORAL
     Route: 048
     Dates: end: 20050101
  3. DIAZEPAM [Suspect]
     Dosage: ORAL
     Route: 048
     Dates: end: 20050101
  4. AMITRIPTYLINE HCL [Suspect]
     Dosage: ORAL
     Route: 048
     Dates: end: 20050101

REACTIONS (6)
  - BRAIN DEATH [None]
  - DRUG EFFECT DECREASED [None]
  - HYPOTENSION [None]
  - MULTI-ORGAN FAILURE [None]
  - RHABDOMYOLYSIS [None]
  - UNRESPONSIVE TO STIMULI [None]
